FAERS Safety Report 7707478 (Version 7)
Quarter: 2013Q2

REPORT INFORMATION
  Report Type: Report from Study
  Country: CA (occurrence: CA)
  Receive Date: 20101214
  Receipt Date: 20130523
  Transmission Date: 20140414
  Serious: Yes (Other)
  Sender: FDA-Public Use
  Company Number: PHHY2010CA19473

PATIENT
  Age: 59 Year
  Sex: Female

DRUGS (13)
  1. ACLASTA/ZOLEDRONATE [Suspect]
     Indication: OSTEOPOROSIS
     Dosage: 5 MG/100ML, YEARLY
     Route: 042
     Dates: start: 20091110
  2. VITAMIN D [Concomitant]
     Dosage: 800 IU
     Dates: start: 1990
  3. CALCIUM [Concomitant]
     Dosage: 1000 MG
     Dates: start: 1990
  4. CLONAZEPAM [Concomitant]
     Dosage: UNK UKN, UNK
  5. SYNTHROID [Concomitant]
  6. NEXIUM [Concomitant]
  7. WELLBUTRIN XL [Concomitant]
     Dosage: 300
  8. EFEXOR XR [Concomitant]
  9. TOPIRAMATE SANDOZ [Concomitant]
     Dosage: UNK UKN, UNK
  10. CO-VENLAFAXINE [Concomitant]
     Dosage: UNK UKN, UNK
  11. RATIO-VENLAFAXINE [Concomitant]
     Dosage: UNK UKN, UNK
  12. JAMP CALCIUM [Concomitant]
  13. JAMP VITAMIN B1 [Concomitant]

REACTIONS (4)
  - Fall [Unknown]
  - Foot fracture [Recovering/Resolving]
  - Rib fracture [Recovered/Resolved]
  - Skeletal injury [Unknown]
